FAERS Safety Report 14120029 (Version 1)
Quarter: 2017Q4

REPORT INFORMATION
  Report Type: Report from Study
  Country: US (occurrence: US)
  Receive Date: 20171024
  Receipt Date: 20171024
  Transmission Date: 20180321
  Serious: Yes (Other)
  Sender: FDA-Public Use
  Company Number: PHEH2017US034029

PATIENT
  Age: 52 Year
  Sex: Female

DRUGS (1)
  1. MYFORTIC [Suspect]
     Active Substance: MYCOPHENOLATE SODIUM
     Indication: ORGAN TRANSPLANT
     Route: 065

REACTIONS (2)
  - Ear infection [Unknown]
  - Transplant rejection [Unknown]

NARRATIVE: CASE EVENT DATE: 201701
